FAERS Safety Report 22912005 (Version 2)
Quarter: 2024Q2

REPORT INFORMATION
  Report Type: Spontaneous
  Country: US (occurrence: US)
  Receive Date: 20230906
  Receipt Date: 20240418
  Transmission Date: 20240715
  Serious: No
  Sender: FDA-Public Use
  Company Number: US-PFIZER INC-202300291196

PATIENT
  Age: 52 Year
  Sex: Female

DRUGS (1)
  1. OXBRYTA [Suspect]
     Active Substance: VOXELOTOR
     Dosage: 500 MG X3 ONCE DAILY
     Route: 048
     Dates: start: 20200525

REACTIONS (4)
  - Abdominal pain upper [Unknown]
  - Epigastric discomfort [Not Recovered/Not Resolved]
  - Therapeutic response unexpected [Not Recovered/Not Resolved]
  - Energy increased [Not Recovered/Not Resolved]
